FAERS Safety Report 4426357-3 (Version None)
Quarter: 2004Q3

REPORT INFORMATION
  Report Type: 
  Country: None (occurrence: None)
  Receive Date: 20040811
  Receipt Date: 20040727
  Transmission Date: 20050211
  Serious: Yes (Death)
  Sender: FDA-Public Use
  Company Number: CAN-2004-0000163

PATIENT
  Sex: Male

DRUGS (4)
  1. OXYCONTIN [Suspect]
     Indication: PAIN
     Dosage: SEE TEXT
     Dates: start: 20030327, end: 20040501
  2. OXYIR TABLETS 10 MG (OXYCODONE HYDROCHLORIDE) IR TABLET [Suspect]
     Indication: PAIN
     Dosage: SEE TEXT
     Dates: start: 20040210, end: 20040301
  3. SUPEUDOL(OXYCODONE HYDROCHLORIDE) [Suspect]
     Indication: PAIN
     Dosage: 10 MG, SEE TEXT,
     Dates: start: 20040115, end: 20040501
  4. OXYCODONE AND ASPIRIN [Suspect]
     Indication: PAIN
     Dosage: SEE TEXT

REACTIONS (8)
  - COMPLETED SUICIDE [None]
  - CRYING [None]
  - DRUG ABUSER [None]
  - DRUG DEPENDENCE [None]
  - HYPOREFLEXIA [None]
  - INTENTIONAL OVERDOSE [None]
  - MEDICATION ERROR [None]
  - ROAD TRAFFIC ACCIDENT [None]
